FAERS Safety Report 9899403 (Version 1)
Quarter: 2014Q1

REPORT INFORMATION
  Report Type: Spontaneous
  Country: US (occurrence: US)
  Receive Date: 20140214
  Receipt Date: 20140214
  Transmission Date: 20141002
  Serious: No
  Sender: FDA-Public Use
  Company Number: US-PFIZER INC-2014041186

PATIENT
  Age: 63 Year
  Sex: Female

DRUGS (4)
  1. CELEBREX [Suspect]
     Dosage: UNK
  2. HYDROCHLOROTHIAZIDE [Suspect]
     Dosage: UNK
  3. SALAGEN [Suspect]
  4. LASIX [Suspect]
     Dosage: UNK

REACTIONS (7)
  - Allergy to arthropod sting [Unknown]
  - Drug hypersensitivity [Unknown]
  - Food allergy [Unknown]
  - Contrast media allergy [Unknown]
  - Allergy to plants [Unknown]
  - Seasonal allergy [Unknown]
  - Allergy to animal [Unknown]
